FAERS Safety Report 15953075 (Version 1)
Quarter: 2019Q1

REPORT INFORMATION
  Report Type: Spontaneous
  Country: US (occurrence: US)
  Receive Date: 20190211
  Receipt Date: 20190211
  Transmission Date: 20190417
  Serious: No
  Sender: FDA-Public Use
  Company Number: US-BIOGEN-2018BI00626608

PATIENT
  Sex: Male

DRUGS (5)
  1. SEROGRL [Concomitant]
     Route: 065
  2. NAMIRIN [Concomitant]
     Route: 065
  3. TECFIDERA [Suspect]
     Active Substance: DIMETHYL FUMARATE
     Indication: MULTIPLE SCLEROSIS
     Dosage: MAINTENANCE DOSE
     Route: 048
     Dates: start: 2015
  4. TECFIDERA [Suspect]
     Active Substance: DIMETHYL FUMARATE
     Route: 048
     Dates: start: 201602
  5. AMPYRA [Suspect]
     Active Substance: DALFAMPRIDINE
     Indication: GAIT DISTURBANCE
     Route: 065

REACTIONS (6)
  - Rash papular [Unknown]
  - Eating disorder [Unknown]
  - Choking [Unknown]
  - Drug ineffective [Unknown]
  - Fall [Recovered/Resolved]
  - Fluid intake reduced [Unknown]
